FAERS Safety Report 12820706 (Version 2)
Quarter: 2016Q4

REPORT INFORMATION
  Report Type: Report from Study
  Country: US (occurrence: US)
  Receive Date: 20161006
  Receipt Date: 20161106
  Transmission Date: 20170207
  Serious: No
  Sender: FDA-Public Use
  Company Number: US-009507513-1609USA011648

PATIENT
  Sex: Male

DRUGS (1)
  1. ISENTRESS [Suspect]
     Active Substance: RALTEGRAVIR POTASSIUM
     Route: 048

REACTIONS (6)
  - Headache [Unknown]
  - Rash [Unknown]
  - Erythema [Unknown]
  - Agitation [Unknown]
  - Unevaluable event [Unknown]
  - Blood pressure increased [Unknown]
